FAERS Safety Report 13687287 (Version 1)
Quarter: 2017Q2

REPORT INFORMATION
  Report Type: Other
  Country: US (occurrence: US)
  Receive Date: 20170623
  Receipt Date: 20170623
  Transmission Date: 20170830
  Serious: Yes (Other)
  Sender: FDA-Public Use
  Company Number: US-THE PROACTIV LLC-2022468

PATIENT
  Age: 15 Year
  Sex: Male

DRUGS (3)
  1. PROACTIV SOLUTION RENEWING CLEANSER [Suspect]
     Active Substance: BENZOYL PEROXIDE
     Indication: ACNE
     Route: 061
     Dates: start: 20170408, end: 20170528
  2. PROACTIV REPAIRING TREATMENT [Suspect]
     Active Substance: BENZOYL PEROXIDE
     Route: 061
     Dates: start: 20170408, end: 20170528
  3. PROACTIV PLUS CLEANSING BODY BAR [Suspect]
     Active Substance: SALICYLIC ACID
     Route: 061
     Dates: start: 20170408, end: 20170528

REACTIONS (1)
  - Chemical burn [Unknown]

NARRATIVE: CASE EVENT DATE: 20170528
